FAERS Safety Report 8909854 (Version 2)
Quarter: 2013Q2

REPORT INFORMATION
  Report Type: Spontaneous
  Country: JP (occurrence: JP)
  Receive Date: 20121115
  Receipt Date: 20130408
  Transmission Date: 20140414
  Serious: Yes (Hospitalization)
  Sender: FDA-Public Use
  Company Number: JP-SANOFI-AVENTIS-2012SA082527

PATIENT
  Age: 64 Year
  Sex: Male

DRUGS (2)
  1. DAONIL [Suspect]
     Indication: DIABETES MELLITUS
     Route: 048
     Dates: start: 20120318, end: 20120319
  2. INSULIN [Concomitant]
     Indication: DIABETES MELLITUS
     Dosage: DOSE:16 UNIT(S)

REACTIONS (5)
  - Hypoglycaemic encephalopathy [Recovered/Resolved]
  - Glycosylated haemoglobin decreased [Recovering/Resolving]
  - Nuclear magnetic resonance imaging abnormal [Recovered/Resolved]
  - Altered state of consciousness [Recovering/Resolving]
  - Blood glucose decreased [Recovering/Resolving]
